FAERS Safety Report 5493975-3 (Version None)
Quarter: 2007Q4

REPORT INFORMATION
  Report Type: 
  Country: None (occurrence: None)
  Receive Date: 20071023
  Receipt Date: 20071011
  Transmission Date: 20080405
  Serious: Yes (Death, Hospitalization, Other)
  Sender: FDA-Public Use
  Company Number: IS-PFIZER INC-2007051884

PATIENT
  Sex: Male
  Weight: 55 kg

DRUGS (3)
  1. SUTENT [Suspect]
     Indication: RENAL CELL CARCINOMA STAGE UNSPECIFIED
     Route: 048
     Dates: start: 20061027, end: 20070525
  2. SUTENT [Suspect]
  3. VALSARTAN [Concomitant]
     Route: 048
     Dates: start: 20061105, end: 20070616

REACTIONS (4)
  - BRONCHIAL FISTULA [None]
  - BRONCHITIS [None]
  - HYPERTENSION [None]
  - PNEUMONIA [None]
